FAERS Safety Report 15246851 (Version 2)
Quarter: 2018Q3

REPORT INFORMATION
  Report Type: Report from Study
  Country: GT (occurrence: GT)
  Receive Date: 20180806
  Receipt Date: 20180903
  Transmission Date: 20181010
  Serious: Yes (Other)
  Sender: FDA-Public Use
  Company Number: PHHY2018GT065013

PATIENT
  Age: 53 Year
  Sex: Female

DRUGS (1)
  1. GILENYA [Suspect]
     Active Substance: FINGOLIMOD HYDROCHLORIDE
     Indication: MULTIPLE SCLEROSIS
     Dosage: 0.5 MG, UNK
     Route: 065
     Dates: start: 20180726

REACTIONS (8)
  - Tachycardia [Unknown]
  - Malaise [Unknown]
  - Nervousness [Unknown]
  - Chest pain [Unknown]
  - Aortic valve incompetence [Unknown]
  - Chest discomfort [Unknown]
  - Toothache [Unknown]
  - Headache [Unknown]
